FAERS Safety Report 5904375-3 (Version None)
Quarter: 2008Q4

REPORT INFORMATION
  Report Type: 
  Country: None (occurrence: None)
  Receive Date: 20081001
  Receipt Date: 20080923
  Transmission Date: 20090506
  Serious: Yes (Disabling, Other)
  Sender: FDA-Public Use
  Company Number: PHEH2008US05338

PATIENT
  Sex: Male

DRUGS (6)
  1. ZOMETA [Suspect]
     Indication: PROSTATE CANCER
     Dosage: 3.3 MG, ONCE/SINGLE
     Dates: start: 20080320, end: 20080320
  2. ZOMETA [Suspect]
     Indication: BONE PAIN
  3. COMPAZINE [Concomitant]
     Indication: ANXIETY
     Dosage: UNK
     Route: 048
     Dates: start: 20070101, end: 20080607
  4. CLONAZEPAM [Concomitant]
     Indication: RESTLESS LEGS SYNDROME
     Dosage: 1 MG, PRN
     Route: 048
     Dates: start: 20040101
  5. PROXETINE [Concomitant]
     Indication: DEPRESSION
     Dosage: 10 MG, QD
     Dates: start: 20040101
  6. LOTREL [Concomitant]
     Indication: HYPERTENSION
     Dosage: 10/20 MG QD
     Dates: start: 20010101, end: 20080612

REACTIONS (14)
  - ASPARTATE AMINOTRANSFERASE INCREASED [None]
  - BLOOD GLUCOSE INCREASED [None]
  - DISORIENTATION [None]
  - DYSARTHRIA [None]
  - FACIAL PAIN [None]
  - GAIT DISTURBANCE [None]
  - HYPERKALAEMIA [None]
  - HYPOAESTHESIA [None]
  - HYPOCALCAEMIA [None]
  - LYMPHOCYTE COUNT DECREASED [None]
  - PARAESTHESIA [None]
  - PHOTOPSIA [None]
  - PLATELET COUNT DECREASED [None]
  - WHITE BLOOD CELL COUNT DECREASED [None]
